FAERS Safety Report 7043715-1 (Version None)
Quarter: 2010Q4

REPORT INFORMATION
  Report Type: 
  Country: None (occurrence: None)
  Receive Date: 20101013
  Receipt Date: 20101006
  Transmission Date: 20110411
  Serious: Yes (Other)
  Sender: FDA-Public Use
  Company Number: GB-TEVA-251157ISR

PATIENT
  Age: 65 Year
  Sex: Male
  Weight: 119 kg

DRUGS (3)
  1. TERBINAFINE HCL [Interacting]
     Indication: TINEA INFECTION
     Route: 048
     Dates: start: 20100624, end: 20100722
  2. EXENATIDE [Suspect]
  3. INSULIN [Suspect]

REACTIONS (2)
  - DRUG INTERACTION [None]
  - HYPOGLYCAEMIA [None]
